FAERS Safety Report 14617506 (Version 1)
Quarter: 2018Q1

REPORT INFORMATION
  Report Type: Spontaneous
  Country: AU (occurrence: AU)
  Receive Date: 20180309
  Receipt Date: 20180309
  Transmission Date: 20180509
  Serious: Yes (Hospitalization)
  Sender: FDA-Public Use
  Company Number: AU-ASTRAZENECA-2018SE27338

PATIENT
  Age: 67 Year
  Sex: Female

DRUGS (5)
  1. INSULIN GLARGINE [Concomitant]
     Active Substance: INSULIN GLARGINE
     Dosage: INSULIN REDUCTION YES, GLARGINE BY 2 UNITS
  2. METFORMIN [Concomitant]
     Active Substance: METFORMIN HYDROCHLORIDE
  3. DAPAGLIFLOZIN. [Suspect]
     Active Substance: DAPAGLIFLOZIN
     Dosage: 10 MG UNKNOWN
     Route: 048
  4. INSULIN GLARGINE [Concomitant]
     Active Substance: INSULIN GLARGINE
     Dosage: 8 UNITS D.
  5. NOVORAPID [Concomitant]
     Active Substance: INSULIN ASPART
     Dosage: 3 UNITS T.D.S.

REACTIONS (1)
  - Diabetic ketoacidosis [Recovered/Resolved]
